FAERS Safety Report 25136163 (Version 1)
Quarter: 2025Q1

REPORT INFORMATION
  Report Type: Other
  Country: CA (occurrence: None)
  Receive Date: 20250328
  Receipt Date: 20250328
  Transmission Date: 20250408
  Serious: Yes (Other)
  Sender: INCYTE
  Company Number: CA-002147023-NVSC2025CA049714

PATIENT
  Age: 65 Year

DRUGS (1)
  1. RUXOLITINIB [Suspect]
     Active Substance: RUXOLITINIB
     Indication: Product used for unknown indication
     Route: 065

REACTIONS (2)
  - Cryptococcosis [Recovering/Resolving]
  - Pneumonia [Recovering/Resolving]
